FAERS Safety Report 9094956 (Version 1)
Quarter: 2013Q1

REPORT INFORMATION
  Report Type: Spontaneous
  Country: US (occurrence: None)
  Receive Date: 20130214
  Receipt Date: 20130214
  Transmission Date: 20140127
  Serious: Yes (Death, Life-Threatening, Hospitalization, Disabling, Congenital Anomaly)
  Sender: FDA-Public Use
  Company Number: None

PATIENT
  Age: 55 Year
  Sex: Female
  Weight: 140.62 kg

DRUGS (1)
  1. PERIOGARD [Suspect]
     Indication: GINGIVAL DISORDER

REACTIONS (7)
  - Dysgeusia [None]
  - Tongue disorder [None]
  - Tongue coated [None]
  - Tooth discolouration [None]
  - Glossodynia [None]
  - Swollen tongue [None]
  - Hypertrophy of tongue papillae [None]
